FAERS Safety Report 8989784 (Version 1)
Quarter: 2012Q4

REPORT INFORMATION
  Report Type: 
  Country: SE (occurrence: SE)
  Receive Date: 20121228
  Receipt Date: 20121228
  Transmission Date: 20130627
  Serious: Yes (Hospitalization)
  Sender: FDA-Public Use
  Company Number: SE-TEVA-377255ISR

PATIENT
  Sex: Female

DRUGS (10)
  1. ENALAPRIL [Suspect]
  2. NORMORIX MITE [Suspect]
  3. SPIRONOLAKTON [Suspect]
  4. ARCOXIA [Concomitant]
     Route: 048
  5. OMEPRAZOL [Concomitant]
  6. IMPUGAN [Concomitant]
     Route: 048
  7. CITODON [Concomitant]
     Route: 048
  8. FLUNITRAZEPAM MYLAN [Concomitant]
     Route: 048
  9. SELOKENZOC [Concomitant]
     Route: 048
  10. TROMBYL [Concomitant]
     Route: 048

REACTIONS (5)
  - Pyelonephritis [Unknown]
  - Vomiting [Unknown]
  - Diarrhoea [Unknown]
  - Hyperkalaemia [Unknown]
  - Dyspnoea [Unknown]
